FAERS Safety Report 7647319-9 (Version None)
Quarter: 2011Q3

REPORT INFORMATION
  Report Type: 
  Country: None (occurrence: None)
  Receive Date: 20110801
  Receipt Date: 20110718
  Transmission Date: 20111222
  Serious: Yes (Hospitalization)
  Sender: FDA-Public Use
  Company Number: DE-ROCHE-791666

PATIENT

DRUGS (1)
  1. TOCILIZUMAB [Suspect]
     Route: 042

REACTIONS (1)
  - ERYSIPELAS [None]
